FAERS Safety Report 22091585 (Version 1)
Quarter: 2023Q1

REPORT INFORMATION
  Report Type: Report from Study
  Country: US (occurrence: None)
  Receive Date: 20230314
  Receipt Date: 20230314
  Transmission Date: 20230418
  Serious: Yes (Other)
  Sender: FDA-Public Use
  Company Number: US-ACS-20230058

PATIENT
  Age: 27 Year
  Sex: Male
  Weight: 79 kg

DRUGS (12)
  1. CEFEPIME [Suspect]
     Active Substance: CEFEPIME HYDROCHLORIDE
  2. GILTERITINIB [Suspect]
     Active Substance: GILTERITINIB
     Indication: Acute myeloid leukaemia
     Dosage: 120MG, CYCLIC. DATE OF LAST DOSE REPORTED AS 25/05/2022 ; CYCLICAL
     Dates: start: 20220523
  3. CYTARABINE [Suspect]
     Active Substance: CYTARABINE
     Indication: Acute myeloid leukaemia
     Dosage: DATE OF LAST DOSE REPORTED AS 21/05/2022. TOTAL DOSE: 200 MG ; CYCLICAL
     Route: 040
     Dates: start: 20220514
  4. DAUNORUBICIN [Suspect]
     Active Substance: DAUNORUBICIN
     Indication: Acute myeloid leukaemia
     Dosage: 90MG/CM2, CYCLIC. TOTAL DOSE: 180 MG.DATE OF LAST DOSE REPORTED AS 16/05/2022 ; CYCLICAL
     Route: 040
     Dates: start: 20220514
  5. ZOSYN [Suspect]
     Active Substance: PIPERACILLIN SODIUM\TAZOBACTAM SODIUM
     Dosage: 4.5G IN 0.9% NACL 100 ML ()
     Route: 040
  6. ZOVIRAX [Suspect]
     Active Substance: ACYCLOVIR
     Dosage: 360 MG IN DEXTROSE 5% 100 ML BAG ()
     Dates: end: 20220607
  7. MICAFUNGIN [Suspect]
     Active Substance: MICAFUNGIN
     Dosage: 100 MG IN 0.9% NACL 100 ML ()
     Route: 040
     Dates: end: 20220607
  8. HEPARIN SODIUM, PORCINE [Concomitant]
     Active Substance: HEPARIN SODIUM
     Dosage: HEPARIN (PORCINE) LOCK FLUSH
  9. COLLAGENASE SANTYL [Concomitant]
     Active Substance: COLLAGENASE CLOSTRIDIUM HISTOLYTICUM
     Dosage: ()
     Route: 061
  10. DECADRON [Concomitant]
     Active Substance: DEXAMETHASONE
     Route: 040
  11. PROTONIX injection [Concomitant]
     Route: 040
  12. ACTIGAL [Concomitant]
     Route: 048

REACTIONS (1)
  - Drug-induced liver injury [Recovered/Resolved]

NARRATIVE: CASE EVENT DATE: 20220606
